FAERS Safety Report 7529606-8 (Version None)
Quarter: 2011Q2

REPORT INFORMATION
  Report Type: 
  Country: None (occurrence: None)
  Receive Date: 20110607
  Receipt Date: 20110520
  Transmission Date: 20111010
  Serious: Yes (Hospitalization)
  Sender: FDA-Public Use
  Company Number: A0784186A

PATIENT
  Age: 37 Year
  Sex: Female
  Weight: 86.4 kg

DRUGS (6)
  1. PREVACID [Concomitant]
  2. TOPROL-XL [Concomitant]
  3. LOPID [Concomitant]
  4. VASOTEC [Concomitant]
  5. AVANDIA [Suspect]
     Indication: DIABETES MELLITUS
     Dosage: 4MG PER DAY
     Route: 048
     Dates: start: 20051101
  6. GLUCOVANCE [Concomitant]

REACTIONS (2)
  - MYOCARDIAL INFARCTION [None]
  - MYOCARDIAL ISCHAEMIA [None]
